FAERS Safety Report 5479205-7 (Version None)
Quarter: 2007Q4

REPORT INFORMATION
  Report Type: 
  Country: None (occurrence: None)
  Receive Date: 20071008
  Receipt Date: 20071004
  Transmission Date: 20080405
  Serious: Yes (Death)
  Sender: FDA-Public Use
  Company Number: ES-JNJFOC-20071001090

PATIENT
  Age: 64 Year
  Sex: Male

DRUGS (6)
  1. HALOPERIDOL [Suspect]
     Indication: PAIN MANAGEMENT
     Route: 042
  2. DURAGESIC-100 [Suspect]
     Indication: PAIN MANAGEMENT
     Route: 062
  3. MORPHINE CHLORIDE [Suspect]
     Indication: PAIN MANAGEMENT
     Route: 042
  4. MORPHINE SUL INJ [Suspect]
     Indication: PAIN MANAGEMENT
     Route: 048
  5. DORMICUM [Suspect]
     Indication: PAIN MANAGEMENT
     Route: 042
  6. SINOGAN [Suspect]
     Indication: PAIN MANAGEMENT
     Route: 042

REACTIONS (2)
  - CONDITION AGGRAVATED [None]
  - HYPONATRAEMIA [None]
